FAERS Safety Report 10432644 (Version 2)
Quarter: 2014Q4

REPORT INFORMATION
  Report Type: Spontaneous
  Country: US (occurrence: US)
  Receive Date: 20140905
  Receipt Date: 20141029
  Transmission Date: 20150528
  Serious: Yes (Other)
  Sender: FDA-Public Use
  Company Number: US-009507513-1409USA000280

PATIENT
  Age: 60 Year
  Sex: Male
  Weight: 83 kg

DRUGS (5)
  1. REBETOL [Suspect]
     Active Substance: RIBAVIRIN
     Indication: HEPATITIS C
     Dosage: 800 MG/D ON WEEK 4
     Route: 048
     Dates: start: 201211, end: 201302
  2. REBETOL [Suspect]
     Active Substance: RIBAVIRIN
     Indication: TENDON RUPTURE
     Dosage: 500 MG, BID
     Route: 048
     Dates: start: 20121101, end: 201211
  3. VICTRELIS [Suspect]
     Active Substance: BOCEPREVIR
     Indication: HEPATITIS C
     Dosage: TAKE 4 CAPSULES BY MOUTH EVERY 8 HOURS WITH FATTY FOOD/800 MG TID PO
     Route: 048
     Dates: start: 20121129
  4. VICTRELIS [Suspect]
     Active Substance: BOCEPREVIR
     Dosage: 600MG AM AND 400MG PM
     Route: 048
  5. REBETOL [Suspect]
     Active Substance: RIBAVIRIN
     Dosage: 600 MG/D ON WEEK 16
     Route: 048
     Dates: start: 201302

REACTIONS (3)
  - Medication error [Unknown]
  - Anaemia [Not Recovered/Not Resolved]
  - Hypotension [Unknown]

NARRATIVE: CASE EVENT DATE: 20121115
